FAERS Safety Report 25884127 (Version 2)
Quarter: 2025Q4

REPORT INFORMATION
  Report Type: Report from Study
  Country: US (occurrence: US)
  Receive Date: 20251006
  Receipt Date: 20251017
  Transmission Date: 20260117
  Serious: Yes (Death, Other)
  Sender: ALEXION PHARMACEUTICALS
  Company Number: US-AstraZeneca-CH-00959960A

PATIENT
  Sex: Female

DRUGS (3)
  1. CAPIVASERTIB [Suspect]
     Active Substance: CAPIVASERTIB
     Dosage: UNK
     Route: 065
  2. FULVESTRANT [Suspect]
     Active Substance: FULVESTRANT
     Dosage: UNK
     Route: 065
  3. FULVESTRANT [Suspect]
     Active Substance: FULVESTRANT

REACTIONS (1)
  - Death [Fatal]
